FAERS Safety Report 9342388 (Version 2)
Quarter: 2015Q1

REPORT INFORMATION
  Report Type: Spontaneous
  Country: US (occurrence: US)
  Receive Date: 20130611
  Receipt Date: 20150112
  Transmission Date: 20150721
  Serious: No
  Sender: FDA-Public Use
  Company Number: US-BAYER-2013-069442

PATIENT
  Age: 31 Year
  Sex: Female

DRUGS (1)
  1. AVELOX [Suspect]
     Active Substance: MOXIFLOXACIN HYDROCHLORIDE
     Indication: SINUSITIS
     Dosage: 400 MG, QD
     Route: 048
     Dates: start: 201304

REACTIONS (19)
  - Gait disturbance [None]
  - Paraesthesia [None]
  - Emotional distress [None]
  - Dysstasia [None]
  - Disturbance in attention [Recovered/Resolved]
  - Feeling abnormal [Recovered/Resolved]
  - Muscle spasms [None]
  - Insomnia [None]
  - Muscle tightness [None]
  - Neuropathy peripheral [None]
  - Activities of daily living impaired [None]
  - Fear [None]
  - Asthenia [Not Recovered/Not Resolved]
  - Pain in extremity [None]
  - Pain [None]
  - Tendonitis [Not Recovered/Not Resolved]
  - Quality of life decreased [None]
  - Multiple injuries [None]
  - Asthenia [None]

NARRATIVE: CASE EVENT DATE: 201305
